FAERS Safety Report 25204460 (Version 1)
Quarter: 2025Q2

REPORT INFORMATION
  Report Type: Spontaneous
  Country: NZ (occurrence: NZ)
  Receive Date: 20250416
  Receipt Date: 20250416
  Transmission Date: 20250717
  Serious: Yes (Death)
  Sender: ELI LILLY AND CO
  Company Number: NZ-Merck Healthcare KGaA-2024039209

PATIENT
  Age: 57 Year
  Sex: Female

DRUGS (2)
  1. ERBITUX [Suspect]
     Active Substance: CETUXIMAB
     Indication: Colorectal cancer metastatic
     Route: 042
     Dates: start: 20240716
  2. ERBITUX [Suspect]
     Active Substance: CETUXIMAB
     Dosage: 500 MG/M2, 2/M
     Route: 042

REACTIONS (7)
  - Cardiac arrest [Fatal]
  - Fall [Unknown]
  - Skin laceration [Unknown]
  - Livedo reticularis [Unknown]
  - Haemorrhage [Unknown]
  - Headache [Unknown]
  - Off label use [Unknown]

NARRATIVE: CASE EVENT DATE: 20241010
